FAERS Safety Report 15665313 (Version 1)
Quarter: 2018Q4

REPORT INFORMATION
  Report Type: Spontaneous
  Country: US (occurrence: US)
  Receive Date: 20181116
  Receipt Date: 20181116
  Transmission Date: 20190205
  Serious: Yes (Hospitalization)
  Sender: FDA-Public Use
  Company Number: None

PATIENT
  Age: 71 Year
  Sex: Female

DRUGS (20)
  1. VITAMIN B12 [Concomitant]
     Active Substance: CYANOCOBALAMIN
  2. MARINOL [Concomitant]
     Active Substance: DRONABINOL
  3. FLUCONAZOLE. [Concomitant]
     Active Substance: FLUCONAZOLE
  4. TYLENOL [Concomitant]
     Active Substance: ACETAMINOPHEN
  5. FUROSEMIDE. [Concomitant]
     Active Substance: FUROSEMIDE
  6. REMERON [Concomitant]
     Active Substance: MIRTAZAPINE
  7. REVATIO [Concomitant]
     Active Substance: SILDENAFIL CITRATE
  8. SPIRIVA [Concomitant]
     Active Substance: TIOTROPIUM BROMIDE MONOHYDRATE
  9. LOVONIX [Concomitant]
  10. LETAIRIS [Suspect]
     Active Substance: AMBRISENTAN
     Indication: HEART DISEASE CONGENITAL
     Route: 048
     Dates: start: 201604
  11. PRAVASTATIN. [Concomitant]
     Active Substance: PRAVASTATIN
  12. LEVOTHYROXINE. [Concomitant]
     Active Substance: LEVOTHYROXINE
  13. ALBUTEROL HFA [Concomitant]
     Active Substance: ALBUTEROL SULFATE
  14. DUNNEB NEBULIZER SOLN [Concomitant]
  15. MAXIPIME [Concomitant]
     Active Substance: CEFEPIME HYDROCHLORIDE
  16. NICODERM CQ PATCH [Concomitant]
  17. ASPRIIN [Concomitant]
  18. PANTOPRAZOLE [Concomitant]
     Active Substance: PANTOPRAZOLE
  19. ROXICODONE [Concomitant]
     Active Substance: OXYCODONE HYDROCHLORIDE
  20. QUAIFENESIN [Concomitant]

REACTIONS (5)
  - Liver abscess [None]
  - Septic shock [None]
  - Product dose omission [None]
  - Peptic ulcer perforation [None]
  - Malnutrition [None]

NARRATIVE: CASE EVENT DATE: 20181025
